FAERS Safety Report 8934570 (Version 2)
Quarter: 2012Q4

REPORT INFORMATION
  Report Type: 
  Country: US (occurrence: US)
  Receive Date: 20121129
  Receipt Date: 20121228
  Transmission Date: 20130627
  Serious: Yes (Other)
  Sender: FDA-Public Use
  Company Number: US-NAPPMUNDI-USA-2012-0096261

PATIENT
  Age: 53 Year
  Sex: Female
  Weight: 70.3 kg

DRUGS (3)
  1. MS CONTIN TABLETS [Suspect]
     Indication: PROCEDURAL PAIN
     Dosage: 15 mg, daily
     Route: 048
     Dates: start: 20121018, end: 20121121
  2. ZYRTEC [Concomitant]
     Indication: PRODUCT USED FOR UNKNOWN INDICATION
     Dosage: 10 mg, daily
     Route: 048
  3. ALPRAZOLAM [Concomitant]
     Indication: PRODUCT USED FOR UNKNOWN INDICATION
     Dosage: 0.5 mg, daily; sometimes twice a day but usually once daily
     Route: 048

REACTIONS (11)
  - Throat tightness [Recovered/Resolved]
  - Oral mucosal blistering [Recovered/Resolved]
  - Influenza like illness [Recovered/Resolved]
  - Aphagia [Recovered/Resolved]
  - Acne [Recovered/Resolved]
  - Tongue eruption [Recovered/Resolved]
  - Dyspnoea [Recovered/Resolved]
  - Urticaria [Recovered/Resolved]
  - Pruritus [Recovered/Resolved]
  - Flushing [Recovered/Resolved]
  - Dry mouth [Recovered/Resolved]
